FAERS Safety Report 7658486-5 (Version None)
Quarter: 2011Q3

REPORT INFORMATION
  Report Type: 
  Country: None (occurrence: None)
  Receive Date: 20110805
  Receipt Date: 20110728
  Transmission Date: 20111222
  Serious: Yes (Hospitalization)
  Sender: FDA-Public Use
  Company Number: JP-BAYER-2011-038939

PATIENT
  Age: 74 Year
  Sex: Male
  Weight: 59 kg

DRUGS (9)
  1. CANDESARTAN CILEXETIL [Concomitant]
     Indication: HYPERTENSION
     Dosage: DAILY DOSE 8 MG
     Route: 048
  2. MIYA BM [Concomitant]
     Dosage: DAILY DOSE 1.5 MG
     Route: 048
  3. PLETAL [Concomitant]
     Dosage: DAILY DOSE 100 MG
     Route: 048
  4. NEXAVAR [Suspect]
     Indication: HEPATIC NEOPLASM MALIGNANT
     Dosage: 200 MG, BID
     Route: 048
     Dates: start: 20110323, end: 20110426
  5. MOBIC [Suspect]
     Dosage: UNK
     Route: 048
  6. MONILAC [Concomitant]
     Dosage: DAILY DOSE 30 ML
     Route: 048
  7. SIGMART [Concomitant]
     Dosage: DAILY DOSE 15 MG
     Route: 048
  8. MAGNESIUM SULFATE [Concomitant]
     Dosage: DAILY DOSE 990 MG
     Route: 048
  9. LENDORMIN [Concomitant]
     Dosage: DAILY DOSE .25 MG
     Route: 048

REACTIONS (1)
  - HEPATIC FUNCTION ABNORMAL [None]
